FAERS Safety Report 12981838 (Version 1)
Quarter: 2016Q4

REPORT INFORMATION
  Report Type: Spontaneous
  Country: FR (occurrence: FR)
  Receive Date: 20161129
  Receipt Date: 20161129
  Transmission Date: 20170207
  Serious: Yes (Other)
  Sender: FDA-Public Use
  Company Number: FR-ROCHE-1860671

PATIENT
  Age: 42 Year
  Sex: Female

DRUGS (13)
  1. MABTHERA [Suspect]
     Active Substance: RITUXIMAB
     Route: 042
     Dates: start: 201410
  2. MYTELASE [Concomitant]
     Active Substance: AMBENONIUM CHLORIDE
     Route: 065
  3. CITALOPRAM [Concomitant]
     Active Substance: CITALOPRAM HYDROBROMIDE
     Route: 065
  4. PREDNISONE. [Concomitant]
     Active Substance: PREDNISONE
     Route: 065
  5. CACIT D3 [Concomitant]
     Active Substance: CALCIUM\CHOLECALCIFEROL
     Dosage: EXCEPT FRIDAY^S
     Route: 065
  6. TARDYFERON (FRANCE) [Concomitant]
     Route: 065
  7. RISEDRONATE [Concomitant]
     Active Substance: RISEDRONATE SODIUM
     Dosage: 1ON FRIDAYS
     Route: 065
  8. LACTULOSE. [Concomitant]
     Active Substance: LACTULOSE
     Dosage: 1X2/DAY IF CONSTIPATION
     Route: 065
  9. DOLIPRANE [Concomitant]
     Active Substance: ACETAMINOPHEN
     Dosage: 1 G EVERY 6 HOURS/DAY IF PAIN
     Route: 065
  10. INEXIUM [Concomitant]
     Active Substance: ESOMEPRAZOLE
     Route: 065
  11. VOLTARENE [Concomitant]
     Active Substance: DICLOFENAC SODIUM
     Dosage: 1 APPLICATION THRICE/DAY FOR 7 DAYS.
     Route: 065
  12. MABTHERA [Suspect]
     Active Substance: RITUXIMAB
     Indication: MUSCULAR WEAKNESS
     Route: 042
     Dates: start: 20161018, end: 20161018
  13. DIFFU K [Concomitant]
     Active Substance: POTASSIUM CHLORIDE
     Route: 065

REACTIONS (4)
  - Vertigo [Recovered/Resolved]
  - Product use issue [Unknown]
  - Tinnitus [Recovered/Resolved]
  - Off label use [Unknown]

NARRATIVE: CASE EVENT DATE: 20161019
